FAERS Safety Report 25868726 (Version 1)
Quarter: 2025Q4

REPORT INFORMATION
  Report Type: Spontaneous
  Country: CA (occurrence: CA)
  Receive Date: 20251001
  Receipt Date: 20251001
  Transmission Date: 20260118
  Serious: Yes (Life-Threatening, Hospitalization)
  Sender: AUROBINDO
  Company Number: CA-AUROBINDO-AUR-APL-2025-049445

PATIENT
  Age: 4 Year
  Sex: Male

DRUGS (5)
  1. AMOXICILLIN [Suspect]
     Active Substance: AMOXICILLIN
     Indication: Otitis media
     Dosage: UNK
     Route: 065
  2. CETIRIZINE [Suspect]
     Active Substance: CETIRIZINE HYDROCHLORIDE
     Indication: Angioedema
     Dosage: 5 MILLIGRAM, ONCE A DAY
     Route: 048
  3. RUPATADINE [Suspect]
     Active Substance: RUPATADINE
     Indication: Rash pruritic
     Dosage: 10 MILLIGRAM
     Route: 048
  4. PREDNISONE [Concomitant]
     Active Substance: PREDNISONE
     Indication: Angioedema
     Dosage: 1 MILLIGRAM/KILOGRAM
     Route: 048
  5. LACTATED RINGERS SOLUTION [Concomitant]
     Active Substance: CALCIUM CHLORIDE\POTASSIUM CHLORIDE\SODIUM CHLORIDE\SODIUM LACTATE
     Indication: Vehicle solution use
     Dosage: 500 MILLILITER
     Route: 042

REACTIONS (3)
  - Drug ineffective [Recovering/Resolving]
  - Overdose [Recovering/Resolving]
  - Serum sickness-like reaction [Recovering/Resolving]
